FAERS Safety Report 5881973-7 (Version None)
Quarter: 2008Q3

REPORT INFORMATION
  Report Type: 
  Country: None (occurrence: None)
  Receive Date: 20080912
  Receipt Date: 20080718
  Transmission Date: 20090109
  Serious: No
  Sender: FDA-Public Use
  Company Number: US-ABBOTT-08P-163-0464265-00

PATIENT
  Sex: Male

DRUGS (2)
  1. HUMIRA [Suspect]
     Indication: PSORIASIS
     Route: 050
     Dates: start: 20080401
  2. CYCLOSPORINE [Concomitant]
     Indication: PSORIASIS
     Dates: end: 20080701

REACTIONS (2)
  - INJECTION SITE PAIN [None]
  - RASH PRURITIC [None]
